FAERS Safety Report 24847761 (Version 1)
Quarter: 2025Q1

REPORT INFORMATION
  Report Type: Spontaneous
  Country: EG (occurrence: EG)
  Receive Date: 20250116
  Receipt Date: 20250116
  Transmission Date: 20250409
  Serious: Yes (Hospitalization, Other)
  Sender: NOVO NORDISK
  Company Number: EG-NOVOPROD-1343104

PATIENT
  Age: 40 Year
  Sex: Male

DRUGS (1)
  1. ACTRAPID [Suspect]
     Active Substance: INSULIN HUMAN
     Indication: Type 1 diabetes mellitus

REACTIONS (5)
  - Diabetic foot [Unknown]
  - Diabetic neuropathy [Unknown]
  - Diabetic hyperglycaemic coma [Unknown]
  - Blood glucose increased [Unknown]
  - Drug ineffective [Unknown]
